FAERS Safety Report 21695622 (Version 1)
Quarter: 2022Q4

REPORT INFORMATION
  Report Type: Spontaneous
  Country: US (occurrence: None)
  Receive Date: 20221207
  Receipt Date: 20221207
  Transmission Date: 20230112
  Serious: Yes (Other)
  Sender: FDA-Public Use
  Company Number: None

PATIENT
  Age: 37 Year
  Sex: Female

DRUGS (2)
  1. EQUATE COOL AND HEAT PAIN RELIEVING LIQUID [Suspect]
     Active Substance: MENTHOL
     Indication: Arthralgia
     Dates: start: 20221206, end: 20221206
  2. UNSPECIFIED INGREDIENT [Concomitant]
     Active Substance: UNSPECIFIED INGREDIENT

REACTIONS (1)
  - Skin burning sensation [None]

NARRATIVE: CASE EVENT DATE: 20221206
